FAERS Safety Report 9361086 (Version 1)
Quarter: 2013Q2

REPORT INFORMATION
  Report Type: Spontaneous
  Country: US (occurrence: None)
  Receive Date: 20130618
  Receipt Date: 20130618
  Transmission Date: 20140414
  Serious: Yes (Hospitalization)
  Sender: FDA-Public Use
  Company Number: US-011979

PATIENT
  Age: 71 Year
  Sex: Male
  Weight: 88.91 kg

DRUGS (5)
  1. DEGARELIX [Suspect]
     Indication: PROSTATE CANCER
     Dosage: TOTAL
     Route: 058
     Dates: start: 20130312, end: 20130312
  2. XGEVA [Concomitant]
  3. TOPROL [Concomitant]
  4. DIOVAN [Concomitant]
  5. WARFARIN [Concomitant]

REACTIONS (1)
  - Cardiac failure congestive [None]
